FAERS Safety Report 11222888 (Version 2)
Quarter: 2015Q3

REPORT INFORMATION
  Report Type: Spontaneous
  Country: US (occurrence: US)
  Receive Date: 20150626
  Receipt Date: 20150724
  Transmission Date: 20151125
  Serious: Yes (Hospitalization, Other)
  Sender: FDA-Public Use
  Company Number: US-TAKEDA-2015TUS008003

PATIENT
  Age: 60 Year
  Sex: Female
  Weight: 121.54 kg

DRUGS (5)
  1. GLUCOPHAGE [Concomitant]
     Active Substance: METFORMIN HYDROCHLORIDE
     Indication: DIABETES MELLITUS
     Dosage: 500, BID
  2. CONTRAVE [Suspect]
     Active Substance: BUPROPION HYDROCHLORIDE\NALTREXONE HYDROCHLORIDE
     Indication: OBESITY
     Dosage: 8MG/90MG, BID
     Route: 048
     Dates: start: 20150501, end: 20150614
  3. SYNTHROID [Concomitant]
     Active Substance: LEVOTHYROXINE SODIUM
     Dosage: UNK, QD
  4. ATENOLOL. [Concomitant]
     Active Substance: ATENOLOL
     Dosage: 50
  5. CONTRAVE [Suspect]
     Active Substance: BUPROPION HYDROCHLORIDE\NALTREXONE HYDROCHLORIDE
     Indication: WEIGHT CONTROL
     Dosage: 8MG/90 MG, QD
     Route: 048
     Dates: start: 201504, end: 201504

REACTIONS (6)
  - Loss of consciousness [Recovered/Resolved with Sequelae]
  - Seizure [Recovered/Resolved]
  - Dehydration [Recovered/Resolved]
  - Diarrhoea [Recovered/Resolved]
  - Inappropriate schedule of drug administration [Recovered/Resolved]
  - Gastroduodenitis [Recovered/Resolved]

NARRATIVE: CASE EVENT DATE: 20150501
